FAERS Safety Report 5682510-2 (Version None)
Quarter: 2008Q1

REPORT INFORMATION
  Report Type: 
  Country: None (occurrence: None)
  Receive Date: 20080326
  Receipt Date: 20080326
  Transmission Date: 20080703
  Serious: Yes (Hospitalization)
  Sender: FDA-Public Use
  Company Number: None

PATIENT
  Age: 33 Year
  Sex: Male
  Weight: 92.6 kg

DRUGS (11)
  1. BACTRIM [Suspect]
     Indication: PROPHYLAXIS
     Dosage: 1 DS PO BID
     Route: 048
  2. ACYCLOVIR [Concomitant]
  3. AMLODIPINE BESYLATE AND BENAZEPRIL HCL [Concomitant]
  4. CLONAZEPAM [Concomitant]
  5. DUPREX SOD. [Concomitant]
  6. LABETALOL HCL [Concomitant]
  7. LITHIUM [Concomitant]
  8. LOVASTATIN [Concomitant]
  9. SYNTHROID [Concomitant]
  10. TRAZODONE HCL [Concomitant]
  11. ZIPRASIDONE HCL [Concomitant]

REACTIONS (2)
  - PYREXIA [None]
  - RASH [None]
